FAERS Safety Report 10250786 (Version 1)
Quarter: 2014Q2

REPORT INFORMATION
  Report Type: Spontaneous
  Country: US (occurrence: US)
  Receive Date: 20140620
  Receipt Date: 20140620
  Transmission Date: 20141212
  Serious: No
  Sender: FDA-Public Use
  Company Number: US-PFIZER INC-2014167848

PATIENT
  Age: 60 Year
  Sex: Male
  Weight: 87.53 kg

DRUGS (7)
  1. LYRICA [Suspect]
     Indication: PAIN IN EXTREMITY
     Dosage: 75 MG, 2X/DAY
     Route: 048
  2. LYRICA [Suspect]
     Dosage: 100 MG, 2X/DAY
     Route: 048
  3. LISINOPRIL [Concomitant]
     Dosage: UNK, 1X/DAY
  4. METOPROLOL [Concomitant]
     Dosage: UNK
  5. CITALOPRAM [Concomitant]
     Dosage: 20 MG, UNK
  6. ASPIRIN [Concomitant]
     Dosage: UNK, 1X/DAY
  7. CRESTOR [Concomitant]
     Dosage: UNK

REACTIONS (1)
  - Drug ineffective [Unknown]
